FAERS Safety Report 7074793-1 (Version None)
Quarter: 2010Q4

REPORT INFORMATION
  Report Type: 
  Country: None (occurrence: None)
  Receive Date: 20101029
  Receipt Date: 20101020
  Transmission Date: 20110411
  Serious: Yes (Hospitalization)
  Sender: FDA-Public Use
  Company Number: CA-ABBOTT-10P-028-0677079-00

PATIENT
  Sex: Female

DRUGS (8)
  1. HUMIRA [Suspect]
     Indication: RHEUMATOID ARTHRITIS
     Route: 058
     Dates: end: 20100922
  2. CARVEDILOL [Suspect]
  3. PRILOSEC [Concomitant]
  4. HYDROXYCHLOROQUINE [Concomitant]
     Route: 048
  5. FLUOXETINE [Concomitant]
  6. VENTOLIN [Concomitant]
  7. RAMIPRIL [Concomitant]
  8. FUROSEMIDE [Concomitant]

REACTIONS (9)
  - DIZZINESS [None]
  - DYSPNOEA [None]
  - FALL [None]
  - LUNG DISORDER [None]
  - ORTHOSTATIC HYPOTENSION [None]
  - PNEUMONIA [None]
  - RALES [None]
  - RESPIRATORY DISTRESS [None]
  - STRESS [None]
